FAERS Safety Report 4315229-0 (Version None)
Quarter: 2004Q1

REPORT INFORMATION
  Report Type: 
  Country: None (occurrence: None)
  Receive Date: 20040311
  Receipt Date: 20040114
  Transmission Date: 20041129
  Serious: Yes (Hospitalization)
  Sender: FDA-Public Use
  Company Number: PHRM2004FR00540

PATIENT
  Age: 79 Year
  Sex: Female
  Weight: 70 kg

DRUGS (10)
  1. NIDREL [Suspect]
     Indication: HYPERTENSION
     Route: 048
  2. TENORMIN [Suspect]
     Indication: HYPERTENSION
     Route: 048
  3. AMLOR [Suspect]
     Indication: HYPERTENSION
     Route: 048
  4. TEGRETOL [Suspect]
     Indication: PARTIAL SEIZURES
     Dosage: 200 MG BID
     Route: 048
     Dates: start: 19820101, end: 20040115
  5. DEROXAT [Concomitant]
     Indication: DEPRESSION
     Route: 048
  6. COTAREG [Concomitant]
     Indication: HYPERTENSION
     Dosage: 160/25 MG/DAY
     Route: 048
  7. VASTEN [Concomitant]
     Dosage: 20 MG, QD
     Route: 048
  8. LOGIMAX [Concomitant]
     Indication: HYPERTENSION
     Dosage: 1 DF, BID
     Route: 048
  9. TRINIPATCH [Concomitant]
     Indication: ANGINA PECTORIS
     Route: 062
  10. TRANXENE [Concomitant]
     Dosage: 5 MG, QD
     Route: 048

REACTIONS (5)
  - CEREBRAL ISCHAEMIA [None]
  - CEREBROVASCULAR ACCIDENT [None]
  - DRUG INTERACTION [None]
  - HEMIPLEGIA [None]
  - HYPERTENSION [None]
